FAERS Safety Report 24413437 (Version 2)
Quarter: 2024Q4

REPORT INFORMATION
  Report Type: Spontaneous
  Country: FR (occurrence: FR)
  Receive Date: 20241008
  Receipt Date: 20241024
  Transmission Date: 20250115
  Serious: Yes (Hospitalization, Other)
  Sender: VIIV
  Company Number: FR-VIIV HEALTHCARE-FR2024EME121404

PATIENT

DRUGS (5)
  1. VOCABRIA [Suspect]
     Active Substance: CABOTEGRAVIR SODIUM
     Indication: Product used for unknown indication
     Dosage: 600 MG, MO
     Dates: start: 20240924
  2. VOCABRIA [Suspect]
     Active Substance: CABOTEGRAVIR SODIUM
  3. VOCABRIA [Suspect]
     Active Substance: CABOTEGRAVIR SODIUM
  4. RILPIVIRINE [Suspect]
     Active Substance: RILPIVIRINE
     Indication: Product used for unknown indication
     Dosage: 900 MG, MO
     Dates: start: 20240924
  5. ODEFSEY [Concomitant]
     Active Substance: EMTRICITABINE\RILPIVIRINE HYDROCHLORIDE\TENOFOVIR ALAFENAMIDE FUMARATE
     Indication: HIV infection
     Dosage: UNK
     Dates: end: 202409

REACTIONS (14)
  - Ischaemic stroke [Recovered/Resolved with Sequelae]
  - Aphasia [Unknown]
  - Sleep disorder [Unknown]
  - Motor dysfunction [Unknown]
  - Conjunctival hyperaemia [Unknown]
  - Folate deficiency [Unknown]
  - Facial asymmetry [Unknown]
  - Cognitive disorder [Unknown]
  - Disturbance in attention [Unknown]
  - Dysgraphia [Unknown]
  - Dyslexia [Unknown]
  - Hypometabolism [Unknown]
  - Ventricular dysfunction [Unknown]
  - Ill-defined disorder [Unknown]

NARRATIVE: CASE EVENT DATE: 20240926
